FAERS Safety Report 23288972 (Version 1)
Quarter: 2023Q4

REPORT INFORMATION
  Report Type: Spontaneous
  Country: US (occurrence: US)
  Receive Date: 20231212
  Receipt Date: 20231212
  Transmission Date: 20240110
  Serious: No
  Sender: FDA-Public Use
  Company Number: US-REATA PHARMACEUTICALS INC.-2023USRTAOMA000299

PATIENT

DRUGS (1)
  1. SKYCLARYS [Suspect]
     Active Substance: OMAVELOXOLONE
     Dosage: 50 MILLIGRAM, QD (BY MOUTH ONCE DAILY, DOSE HAS BEEN DECREASED FROM 3 TO 2 CAPSULES A DAY)
     Route: 048
     Dates: start: 20230704

REACTIONS (7)
  - Epistaxis [Unknown]
  - Blood glucose abnormal [Unknown]
  - Dysphonia [None]
  - Movement disorder [None]
  - Adverse drug reaction [None]
  - Diarrhoea [None]
  - Off label use [None]

NARRATIVE: CASE EVENT DATE: 20230101
